FAERS Safety Report 9821003 (Version 1)
Quarter: 2013Q4

REPORT INFORMATION
  Report Type: Spontaneous
  Country: US (occurrence: None)
  Receive Date: 20131028
  Receipt Date: 20131028
  Transmission Date: 20140711
  Serious: No
  Sender: FDA-Public Use
  Company Number: 2013US001634

PATIENT
  Age: 63 Year
  Sex: Female
  Weight: 91 kg

DRUGS (3)
  1. ICLUSIG [Suspect]
     Indication: ACUTE LYMPHOCYTIC LEUKAEMIA
     Route: 048
     Dates: start: 2013, end: 20130513
  2. TYLENOL [Concomitant]
  3. NOVOLIN (INSULIN HUMAN, INSULIN HUMAN INJECTION , ISOPHANE) [Concomitant]

REACTIONS (3)
  - White blood cell count increased [None]
  - Gene mutation [None]
  - Rash [None]
